APPROVED DRUG PRODUCT: CEFOXITIN
Active Ingredient: CEFOXITIN SODIUM
Strength: EQ 10GM BASE/VIAL
Dosage Form/Route: INJECTABLE;INJECTION
Application: A065239 | Product #001 | TE Code: AP
Applicant: HIKMA FARMACEUTICA (PORTUGAL) SA
Approved: Mar 2, 2010 | RLD: No | RS: No | Type: RX